FAERS Safety Report 7429977-7 (Version None)
Quarter: 2011Q2

REPORT INFORMATION
  Report Type: 
  Country: None (occurrence: None)
  Receive Date: 20110421
  Receipt Date: 20110419
  Transmission Date: 20111010
  Serious: Yes (Other)
  Sender: FDA-Public Use
  Company Number: US-PFIZER INC-2010134609

PATIENT
  Sex: Female
  Weight: 90.703 kg

DRUGS (14)
  1. VESICARE [Suspect]
  2. TOVIAZ [Suspect]
     Indication: BLADDER DISORDER
     Dosage: 8 MG, 1X/DAY
     Route: 048
     Dates: start: 20100901, end: 20100928
  3. TOVIAZ [Suspect]
     Indication: MICTURITION DISORDER
  4. DITROPAN [Suspect]
  5. DARIFENACIN [Suspect]
  6. CHONDROITIN/GLUCOSAMINE [Concomitant]
     Dosage: UNK
  7. TROSPIUM [Suspect]
  8. ACETYLSALICYLIC ACID [Concomitant]
     Indication: PROPHYLAXIS
     Dosage: 81 MG, 1X/DAY
     Route: 048
  9. FISH OIL [Concomitant]
     Dosage: 1200 MG, UNK
  10. TOFRANIL [Suspect]
  11. AMLODIPINE BESILATE [Concomitant]
     Indication: HYPERTENSION
     Dosage: 5 MG, 1X/DAY
     Route: 048
  12. ENALAPRIL [Concomitant]
     Indication: HYPERTENSION
     Dosage: ONE TABLET OF 10 MG IN MORNING AND HALF TABLET OF 10 MG IN NIGHT
  13. TOVIAZ [Suspect]
     Indication: HYPERTONIC BLADDER
  14. CALCIUM [Concomitant]
     Dosage: 600 MG, UNK

REACTIONS (3)
  - CHEST DISCOMFORT [None]
  - GASTROOESOPHAGEAL REFLUX DISEASE [None]
  - MALAISE [None]
